FAERS Safety Report 9378949 (Version 1)
Quarter: 2013Q3

REPORT INFORMATION
  Report Type: Spontaneous
  Country: US (occurrence: US)
  Receive Date: 20130702
  Receipt Date: 20130702
  Transmission Date: 20140515
  Serious: Yes (Hospitalization)
  Sender: FDA-Public Use
  Company Number: US-SANOFI-AVENTIS-2013SA065916

PATIENT
  Age: 62 Year
  Sex: Male

DRUGS (5)
  1. LANTUS [Suspect]
     Dosage: DOSE:30 UNIT(S)
     Route: 051
  2. LANTUS [Suspect]
     Dosage: DOSE:40 UNIT(S)
     Route: 051
  3. LANTUS SOLOSTAR [Suspect]
     Dosage: THERAPY START DATE - 2 YEARS DOSE:40 UNIT(S)
     Route: 051
  4. SOLOSTAR [Suspect]
     Dosage: THERAPY START DATE - 2 YEARS
  5. HUMALOG MIX PEN [Concomitant]

REACTIONS (1)
  - Adverse event [Unknown]
